FAERS Safety Report 24048626 (Version 1)
Quarter: 2024Q3

REPORT INFORMATION
  Report Type: Spontaneous
  Country: US (occurrence: US)
  Receive Date: 20240704
  Receipt Date: 20240704
  Transmission Date: 20241016
  Serious: Yes (Hospitalization)
  Sender: LUPIN
  Company Number: US-LUPIN PHARMACEUTICALS INC.-2024-05685

PATIENT
  Age: 43 Year
  Sex: Female

DRUGS (1)
  1. METFORMIN [Suspect]
     Active Substance: METFORMIN HYDROCHLORIDE
     Indication: Product used for unknown indication
     Dosage: UNK, INGESTED 360 METFORMIN 1-GRAM TABLETS
     Route: 048

REACTIONS (3)
  - Intentional overdose [Unknown]
  - Hypoglycaemia [Unknown]
  - Metabolic acidosis [Recovering/Resolving]
